FAERS Safety Report 22815410 (Version 3)
Quarter: 2024Q1

REPORT INFORMATION
  Report Type: Spontaneous
  Country: US (occurrence: US)
  Receive Date: 20230811
  Receipt Date: 20240222
  Transmission Date: 20240410
  Serious: No
  Sender: FDA-Public Use
  Company Number: US-Calliditas-2023CAL00969

PATIENT
  Age: 28 Year
  Sex: Male

DRUGS (1)
  1. TARPEYO [Suspect]
     Active Substance: BUDESONIDE
     Indication: IgA nephropathy
     Dosage: 16 MG (4 MG CAPSULES) ONCE DAILY
     Route: 048
     Dates: start: 20230621

REACTIONS (4)
  - Renal pain [Recovered/Resolved]
  - Product dose omission issue [Unknown]
  - Acne [Recovered/Resolved]
  - Petechiae [Recovered/Resolved]
